FAERS Safety Report 9339507 (Version 1)
Quarter: 2013Q2

REPORT INFORMATION
  Report Type: Spontaneous
  Country: JP (occurrence: JP)
  Receive Date: 20130610
  Receipt Date: 20130610
  Transmission Date: 20140414
  Serious: Yes (Other)
  Sender: FDA-Public Use
  Company Number: JP-PFIZER INC-2013171574

PATIENT
  Age: 11 Year
  Sex: Male

DRUGS (3)
  1. METHYLPREDNISOLONE [Suspect]
     Indication: ACUTE HEPATIC FAILURE
     Dosage: 20 MG/KG, UNK
  2. FRESH FROZEN PLASMA [Concomitant]
     Indication: ACUTE HEPATIC FAILURE
     Dosage: UNK
  3. VITAMIN K [Concomitant]
     Indication: ACUTE HEPATIC FAILURE
     Dosage: UNK

REACTIONS (2)
  - Hypothermia [Recovered/Resolved]
  - Bradycardia [Recovered/Resolved]
